FAERS Safety Report 21338199 (Version 1)
Quarter: 2022Q3

REPORT INFORMATION
  Report Type: Spontaneous
  Country: CN (occurrence: CN)
  Receive Date: 20220915
  Receipt Date: 20220915
  Transmission Date: 20221027
  Serious: Yes (Hospitalization, Other)
  Sender: FDA-Public Use
  Company Number: CN-009507513-2209CHN004836

PATIENT
  Age: 67 Year
  Sex: Male
  Weight: 73 kg

DRUGS (18)
  1. KEYTRUDA [Suspect]
     Active Substance: PEMBROLIZUMAB
     Indication: Squamous cell carcinoma of lung
     Dosage: 200 MG
     Dates: start: 20220129, end: 20220129
  2. KEYTRUDA [Suspect]
     Active Substance: PEMBROLIZUMAB
     Dosage: 200 MG
     Dates: start: 20220223, end: 20220223
  3. KEYTRUDA [Suspect]
     Active Substance: PEMBROLIZUMAB
     Dosage: 200 MG
     Dates: start: 20220318, end: 20220318
  4. KEYTRUDA [Suspect]
     Active Substance: PEMBROLIZUMAB
     Dosage: 200 MG
     Dates: start: 20220412, end: 20220412
  5. KEYTRUDA [Suspect]
     Active Substance: PEMBROLIZUMAB
     Dosage: 200 MG
     Dates: start: 20220516, end: 20220516
  6. KEYTRUDA [Suspect]
     Active Substance: PEMBROLIZUMAB
     Dosage: 200 MG
     Dates: start: 20220611, end: 20220611
  7. KEYTRUDA [Suspect]
     Active Substance: PEMBROLIZUMAB
     Dosage: 200 MG
     Route: 041
     Dates: start: 20220712, end: 20220712
  8. KEYTRUDA [Suspect]
     Active Substance: PEMBROLIZUMAB
     Dosage: 200 MG
     Dates: start: 20220810, end: 20220810
  9. CARBOPLATIN [Suspect]
     Active Substance: CARBOPLATIN
     Indication: Squamous cell carcinoma of lung
     Dosage: 0.5 G
     Dates: start: 20220129, end: 20220129
  10. CARBOPLATIN [Suspect]
     Active Substance: CARBOPLATIN
     Dosage: 0.5 G
     Dates: start: 20220223, end: 20220223
  11. CARBOPLATIN [Suspect]
     Active Substance: CARBOPLATIN
     Dosage: 0.5 G
     Dates: start: 20220318, end: 20220318
  12. CARBOPLATIN [Suspect]
     Active Substance: CARBOPLATIN
     Dosage: 0.5 G
     Dates: start: 20220412, end: 20220412
  13. CARBOPLATIN [Suspect]
     Active Substance: CARBOPLATIN
     Dosage: 0.4 G
     Dates: start: 20220516, end: 20220516
  14. PACLITAXEL [Suspect]
     Active Substance: PACLITAXEL
     Indication: Squamous cell carcinoma of lung
     Dosage: 400 MG
     Dates: start: 20220129, end: 20220129
  15. PACLITAXEL [Suspect]
     Active Substance: PACLITAXEL
     Dosage: 400 MG
     Dates: start: 20220223, end: 20220223
  16. PACLITAXEL [Suspect]
     Active Substance: PACLITAXEL
     Dosage: 400 MG
     Dates: start: 20220318, end: 20220318
  17. PACLITAXEL [Suspect]
     Active Substance: PACLITAXEL
     Dosage: 400 MG
     Dates: start: 20220412, end: 20220412
  18. PACLITAXEL [Suspect]
     Active Substance: PACLITAXEL
     Dosage: 400 MG
     Dates: start: 20220516, end: 20220516

REACTIONS (10)
  - Myelosuppression [Unknown]
  - Pneumonia [Unknown]
  - Immune-mediated lung disease [Recovering/Resolving]
  - Product use issue [Unknown]
  - Product use issue [Unknown]
  - Product use issue [Unknown]
  - Product use issue [Unknown]
  - Product use issue [Unknown]
  - Product use issue [Unknown]
  - Product use issue [Unknown]

NARRATIVE: CASE EVENT DATE: 20220223
